FAERS Safety Report 12143215 (Version 1)
Quarter: 2016Q1

REPORT INFORMATION
  Report Type: Report from Study
  Country: BR (occurrence: BR)
  Receive Date: 20160304
  Receipt Date: 20160304
  Transmission Date: 20160526
  Serious: Yes (Other)
  Sender: FDA-Public Use
  Company Number: BR-ROCHE-1713922

PATIENT
  Sex: Female
  Weight: 83 kg

DRUGS (5)
  1. OSCAL [Concomitant]
     Active Substance: CALCIUM CARBONATE
     Dosage: ONE TABLET AFTER THE LUNCH
     Route: 065
  2. PREDNISONE. [Concomitant]
     Active Substance: PREDNISONE
     Route: 065
  3. FOLIC ACID. [Concomitant]
     Active Substance: FOLIC ACID
     Route: 065
  4. ACTEMRA [Suspect]
     Active Substance: TOCILIZUMAB
     Indication: RHEUMATOID ARTHRITIS
     Dosage: MOST RECENT DOSE WAS ON 24/FEB/2016.
     Route: 042
     Dates: start: 20160114
  5. METHOTREXATE [Concomitant]
     Active Substance: METHOTREXATE
     Route: 065

REACTIONS (9)
  - Mass [Unknown]
  - Ligament sprain [Unknown]
  - Extravasation [Unknown]
  - Gait disturbance [Recovering/Resolving]
  - Swelling [Recovering/Resolving]
  - Localised infection [Recovered/Resolved]
  - Arthralgia [Recovering/Resolving]
  - Musculoskeletal stiffness [Recovering/Resolving]
  - Blister infected [Recovering/Resolving]
